FAERS Safety Report 9187700 (Version 1)
Quarter: 2013Q1

REPORT INFORMATION
  Report Type: Spontaneous
  Country: US (occurrence: US)
  Receive Date: 20130325
  Receipt Date: 20130325
  Transmission Date: 20140127
  Serious: No
  Sender: FDA-Public Use
  Company Number: US-MYLANLABS-2012S1003369

PATIENT
  Age: 41 Year
  Sex: Female

DRUGS (6)
  1. FENTANYL TRANSDERMAL SYSTEM [Suspect]
     Dosage: CHANGES EVERY 72 HOURS
     Route: 062
     Dates: start: 201201
  2. ZOFRAN [Concomitant]
  3. PROMETHAZINE [Concomitant]
  4. OMEPRAZOLE [Concomitant]
  5. VICODIN [Concomitant]
  6. NYSTATIN [Concomitant]
     Dosage: SUSPENSION

REACTIONS (1)
  - Feeling abnormal [Not Recovered/Not Resolved]
